FAERS Safety Report 9177088 (Version 2)
Quarter: 2013Q2

REPORT INFORMATION
  Report Type: Spontaneous
  Country: US (occurrence: US)
  Receive Date: 20130321
  Receipt Date: 20130517
  Transmission Date: 20140414
  Serious: Yes (Other)
  Sender: FDA-Public Use
  Company Number: US-PFIZER INC-2013092916

PATIENT
  Age: 60 Year
  Sex: Female

DRUGS (8)
  1. CHANTIX [Suspect]
     Dosage: STARTER PACK
     Dates: start: 20090116
  2. CHANTIX [Suspect]
     Dosage: 1 MG, MAINTENANCE PACK
     Dates: start: 20090228
  3. CHANTIX [Suspect]
     Dosage: UNK
     Dates: end: 20090329
  4. CLONAZEPAM [Concomitant]
     Dosage: 2 MG, UNK
     Dates: start: 20090324
  5. KLONOPIN [Concomitant]
     Indication: ANXIETY
     Dosage: UNK
     Dates: start: 20090406
  6. PEXEVA [Concomitant]
     Dosage: 40 MG, ONE AND HALF DOSE AT BED TIME
     Route: 048
     Dates: start: 20090406
  7. ADDERALL [Concomitant]
     Dosage: 30 MG, 2X/DAY
     Dates: start: 20090406
  8. WELLBUTRIN XL [Concomitant]
     Dosage: UNK
     Dates: start: 20090406

REACTIONS (1)
  - Suicidal ideation [Unknown]
